FAERS Safety Report 7371480-7 (Version None)
Quarter: 2011Q1

REPORT INFORMATION
  Report Type: 
  Country: None (occurrence: None)
  Receive Date: 20110322
  Receipt Date: 20110322
  Transmission Date: 20110831
  Serious: Yes (Hospitalization)
  Sender: FDA-Public Use
  Company Number: None

PATIENT
  Sex: Female
  Weight: 57.9 kg

DRUGS (2)
  1. IRINOTECAN HCL [Suspect]
     Indication: SARCOMA METASTATIC
     Dosage: 140MG DAYS 1,8-, 15 IV
     Route: 042
     Dates: start: 20110308, end: 20110314
  2. TEMSIROLIMUS [Suspect]
     Indication: SARCOMA METASTATIC
     Dosage: 20MG DAYS 1, 8, 15 IV
     Route: 042
     Dates: start: 20110308, end: 20110314

REACTIONS (7)
  - NAUSEA [None]
  - ABDOMINAL PAIN [None]
  - DIARRHOEA [None]
  - HEART RATE INCREASED [None]
  - ASTHENIA [None]
  - BLOOD CREATININE ABNORMAL [None]
  - BLOOD PRESSURE DECREASED [None]
